FAERS Safety Report 6049088-5 (Version None)
Quarter: 2009Q1

REPORT INFORMATION
  Report Type: 
  Country: None (occurrence: None)
  Receive Date: 20090123
  Receipt Date: 20090112
  Transmission Date: 20090719
  Serious: Yes (Death, Other)
  Sender: FDA-Public Use
  Company Number: US-ROCHE-608418

PATIENT
  Age: 52 Year
  Sex: Female

DRUGS (12)
  1. DIAZEPAM [Suspect]
     Indication: DRUG USE FOR UNKNOWN INDICATION
     Dosage: ROUTE REPORTED: INGESTION.
     Route: 048
  2. DIAZEPAM [Suspect]
     Route: 048
  3. ETHANOL [Suspect]
     Indication: DRUG USE FOR UNKNOWN INDICATION
     Dosage: ROUTE REPORTED: INGESTION.
     Route: 048
  4. ETHANOL [Suspect]
     Route: 048
  5. ACETAMINOPHEN [Suspect]
     Indication: DRUG USE FOR UNKNOWN INDICATION
     Dosage: ROUTE REPORTED: INGESTION.
     Route: 048
  6. ACETAMINOPHEN [Suspect]
     Route: 048
  7. BUTALBITAL [Suspect]
     Indication: DRUG USE FOR UNKNOWN INDICATION
     Dosage: ROUTE REPORTED: INGESTION.
     Route: 048
  8. BUTALBITAL [Suspect]
     Route: 048
  9. CAFFEINE [Suspect]
     Indication: DRUG USE FOR UNKNOWN INDICATION
     Dosage: ROUTE REPORTED: INGESTION.
     Route: 048
  10. CAFFEINE [Suspect]
     Route: 048
  11. CODEINE SUL TAB [Suspect]
     Indication: DRUG USE FOR UNKNOWN INDICATION
     Dosage: ROUTE REPORTED: INGESTION.
     Route: 048
  12. CODEINE SUL TAB [Suspect]
     Route: 048

REACTIONS (3)
  - CARDIAC ARREST [None]
  - COMPLETED SUICIDE [None]
  - RESPIRATORY ARREST [None]
